FAERS Safety Report 5525285-X (Version None)
Quarter: 2007Q4

REPORT INFORMATION
  Report Type: 
  Country: None (occurrence: None)
  Receive Date: 20071126
  Receipt Date: 20071121
  Transmission Date: 20080405
  Serious: Yes (Hospitalization, Disabling)
  Sender: FDA-Public Use
  Company Number: JP-BRISTOL-MYERS SQUIBB COMPANY-13848163

PATIENT
  Age: 67 Year
  Sex: Male
  Weight: 46 kg

DRUGS (5)
  1. BRIPLATIN [Suspect]
     Indication: PLEURAL MESOTHELIOMA MALIGNANT
     Route: 041
     Dates: start: 20070306, end: 20070306
  2. ALIMTA [Suspect]
     Indication: PLEURAL MESOTHELIOMA MALIGNANT
     Route: 042
     Dates: start: 20070306, end: 20070306
  3. GEMZAR [Suspect]
     Indication: PLEURAL MESOTHELIOMA MALIGNANT
  4. PANVITAN [Concomitant]
     Route: 048
     Dates: start: 20070222, end: 20070508
  5. CYANOCOBALAMIN [Concomitant]
     Route: 030
     Dates: start: 20070222, end: 20070222

REACTIONS (7)
  - ANAEMIA [None]
  - LYMPHOCYTE COUNT DECREASED [None]
  - MYELODYSPLASTIC SYNDROME [None]
  - NEUTROPHIL COUNT DECREASED [None]
  - PLATELET COUNT DECREASED [None]
  - RENAL IMPAIRMENT [None]
  - WHITE BLOOD CELL COUNT DECREASED [None]
